FAERS Safety Report 14579088 (Version 1)
Quarter: 2018Q1

REPORT INFORMATION
  Report Type: Spontaneous
  Country: US (occurrence: US)
  Receive Date: 20180227
  Receipt Date: 20180227
  Transmission Date: 20180509
  Serious: Yes (Hospitalization, Other)
  Sender: FDA-Public Use
  Company Number: US-BAYER-2018-036899

PATIENT
  Age: 29 Year
  Sex: Female

DRUGS (2)
  1. CORICIDIN HBP COUGH AND COLD [Suspect]
     Active Substance: CHLORPHENIRAMINE MALEATE\DEXTROMETHORPHAN HYDROBROMIDE
     Dosage: 12 DF, UNK
     Route: 048
  2. MUCINEX [Suspect]
     Active Substance: GUAIFENESIN
     Dosage: 9 DF, UNK
     Route: 048

REACTIONS (3)
  - Overdose [Recovered/Resolved]
  - Substance-induced psychotic disorder [Recovered/Resolved]
  - Drug abuse [Recovered/Resolved]
